FAERS Safety Report 4725599-7 (Version None)
Quarter: 2005Q3

REPORT INFORMATION
  Report Type: 
  Country: None (occurrence: None)
  Receive Date: 20050727
  Receipt Date: 20050720
  Transmission Date: 20060218
  Serious: Yes (Death)
  Sender: FDA-Public Use
  Company Number: JP-BRISTOL-MYERS SQUIBB COMPANY-13047022

PATIENT
  Age: 7 Decade
  Sex: Male

DRUGS (2)
  1. TAXOL [Suspect]
     Indication: NON-SMALL CELL LUNG CANCER
     Dosage: GIVEN ON DAYS 1 AND 8
     Route: 042
  2. PARAPLATIN [Concomitant]
     Dosage: AUC = 6 GIVEN ON DAY 1

REACTIONS (1)
  - MYOCARDIAL INFARCTION [None]
